FAERS Safety Report 20707694 (Version 2)
Quarter: 2022Q2

REPORT INFORMATION
  Report Type: Spontaneous
  Country: AT (occurrence: AT)
  Receive Date: 20220413
  Receipt Date: 20220627
  Transmission Date: 20220721
  Serious: Yes (Other)
  Sender: FDA-Public Use
  Company Number: None

PATIENT
  Sex: Female

DRUGS (2)
  1. LEVETIRACETAM [Suspect]
     Active Substance: LEVETIRACETAM
     Indication: Product used for unknown indication
     Dosage: UNK
  2. DABIGATRAN [Interacting]
     Active Substance: DABIGATRAN
     Indication: Cerebral venous sinus thrombosis
     Dosage: 150 MILLIGRAM, 2X/DAY (BID)
     Route: 048
     Dates: start: 20211213, end: 20211216

REACTIONS (3)
  - Venous thrombosis [Unknown]
  - Drug interaction [Unknown]
  - Anticoagulation drug level below therapeutic [Unknown]
